FAERS Safety Report 5213536-0 (Version None)
Quarter: 2007Q1

REPORT INFORMATION
  Report Type: 
  Country: None (occurrence: None)
  Receive Date: 20070119
  Receipt Date: 20070110
  Transmission Date: 20070707
  Serious: Yes (Other)
  Sender: FDA-Public Use
  Company Number: AU-ROCHE-478214

PATIENT
  Age: 42 Year
  Sex: Female

DRUGS (1)
  1. XENICAL [Suspect]
     Indication: DRUG USE FOR UNKNOWN INDICATION
     Route: 065
     Dates: start: 20060801, end: 20061015

REACTIONS (3)
  - ANAL HAEMORRHAGE [None]
  - DIARRHOEA [None]
  - HAEMORRHOIDS [None]
